FAERS Safety Report 19885211 (Version 2)
Quarter: 2021Q4

REPORT INFORMATION
  Report Type: Spontaneous
  Country: US (occurrence: US)
  Receive Date: 20210927
  Receipt Date: 20211019
  Transmission Date: 20220303
  Serious: No
  Sender: FDA-Public Use
  Company Number: US-AMGEN-USASP2021143441

PATIENT
  Age: 63 Year
  Sex: Female
  Weight: 84.35 kg

DRUGS (1)
  1. REPATHA [Suspect]
     Active Substance: EVOLOCUMAB
     Indication: Type V hyperlipidaemia
     Dosage: UNK UNK, QMO
     Route: 065
     Dates: start: 20191121

REACTIONS (2)
  - Wrong technique in product usage process [Unknown]
  - Incorrect route of product administration [Unknown]

NARRATIVE: CASE EVENT DATE: 20210912
